FAERS Safety Report 12060571 (Version 2)
Quarter: 2016Q1

REPORT INFORMATION
  Report Type: Spontaneous
  Country: US (occurrence: US)
  Receive Date: 20160210
  Receipt Date: 20160229
  Transmission Date: 20160526
  Serious: Yes (Death, Hospitalization, Other)
  Sender: FDA-Public Use
  Company Number: US-GLAXOSMITHKLINE-US2016018884

PATIENT
  Age: 35 Year
  Sex: Male
  Weight: 200 kg

DRUGS (1)
  1. TANZEUM [Suspect]
     Active Substance: ALBIGLUTIDE
     Indication: PRODUCT USED FOR UNKNOWN INDICATION
     Dosage: UNK
     Route: 030
     Dates: start: 201411, end: 20160204

REACTIONS (10)
  - Vomiting [Unknown]
  - Pulmonary embolism [Fatal]
  - Abdominal pain [Unknown]
  - Pancreatitis [Unknown]
  - Nausea [Unknown]
  - Lipase increased [Unknown]
  - Dyspepsia [Unknown]
  - Incorrect route of drug administration [Unknown]
  - Amylase increased [Unknown]
  - Adverse event [Unknown]

NARRATIVE: CASE EVENT DATE: 20160109
